FAERS Safety Report 4539853-5 (Version None)
Quarter: 2004Q4

REPORT INFORMATION
  Report Type: 
  Country: None (occurrence: None)
  Receive Date: 20041222
  Receipt Date: 20041203
  Transmission Date: 20050328
  Serious: Yes (Hospitalization, Other)
  Sender: FDA-Public Use
  Company Number: USA041285220

PATIENT
  Sex: Female

DRUGS (4)
  1. CYMBALTA [Suspect]
     Indication: DEPRESSION
     Dosage: 30MG DAY
     Dates: start: 20041109, end: 20040101
  2. KLONOPIN [Concomitant]
  3. MAXZIDE-25 [Concomitant]
  4. COUMADIN [Concomitant]

REACTIONS (2)
  - PLATELET COUNT DECREASED [None]
  - VAGINAL HAEMORRHAGE [None]
